FAERS Safety Report 6766008-6 (Version None)
Quarter: 2010Q2

REPORT INFORMATION
  Report Type: 
  Country: None (occurrence: None)
  Receive Date: 20100611
  Receipt Date: 20100604
  Transmission Date: 20101027
  Serious: Yes (Hospitalization)
  Sender: FDA-Public Use
  Company Number: A0857790A

PATIENT
  Age: 68 Year
  Sex: Male
  Weight: 147.4 kg

DRUGS (16)
  1. MELPHALAN HYDROCHLORIDE [Suspect]
     Indication: MULTIPLE MYELOMA
     Dosage: 9MGM2 CYCLIC
     Route: 048
     Dates: start: 20091218
  2. VELCADE [Suspect]
     Indication: MULTIPLE MYELOMA
     Dosage: 1.3MGM2 CYCLIC
     Route: 042
     Dates: start: 20091218
  3. PREDNISONE [Suspect]
     Indication: MULTIPLE MYELOMA
     Dosage: 60MGM2 CYCLIC
     Route: 048
     Dates: start: 20091218
  4. COUMADIN [Concomitant]
  5. LASIX [Concomitant]
  6. POTASSIUM CHLORIDE [Concomitant]
  7. ASPIRIN [Concomitant]
  8. PRAVACHOL [Concomitant]
  9. BENICAR [Concomitant]
  10. LOPRESSOR [Concomitant]
  11. MAGNESIUM OXIDE [Concomitant]
  12. ADVAIR DISKUS 100/50 [Concomitant]
  13. XALATAN [Concomitant]
  14. ALPHAGAN [Concomitant]
  15. ALBUTEROL [Concomitant]
  16. GEMFIBROZIL [Concomitant]

REACTIONS (10)
  - DYSPNOEA [None]
  - FAILURE TO THRIVE [None]
  - FATIGUE [None]
  - HYPOTENSION [None]
  - MUSCLE SPASMS [None]
  - MUSCULOSKELETAL PAIN [None]
  - PANCYTOPENIA [None]
  - PNEUMONITIS [None]
  - RENAL FAILURE ACUTE [None]
  - THROMBOCYTOPENIA [None]
